FAERS Safety Report 7092329-6 (Version None)
Quarter: 2010Q4

REPORT INFORMATION
  Report Type: 
  Country: None (occurrence: None)
  Receive Date: 20101109
  Receipt Date: 20101027
  Transmission Date: 20110411
  Serious: Yes (Other)
  Sender: FDA-Public Use
  Company Number: GB-MYLANLABS-2010S1019818

PATIENT
  Age: 76 Year
  Sex: Female

DRUGS (4)
  1. RISPERIDONE [Suspect]
     Indication: BIPOLAR DISORDER
  2. BECOTIDE [Concomitant]
     Indication: ASTHMA
  3. SALBUTAMOL [Concomitant]
     Indication: ASTHMA
  4. SERTRALINE HYDROCHLORIDE [Concomitant]
     Indication: BIPOLAR DISORDER

REACTIONS (1)
  - FLOPPY IRIS SYNDROME [None]
